FAERS Safety Report 16795650 (Version 1)
Quarter: 2019Q3

REPORT INFORMATION
  Report Type: Spontaneous
  Country: US (occurrence: US)
  Receive Date: 20190911
  Receipt Date: 20190911
  Transmission Date: 20191005
  Serious: Yes (Hospitalization)
  Sender: FDA-Public Use
  Company Number: US-TEVA-2019-US-1104395

PATIENT
  Sex: Male
  Weight: 95.8 kg

DRUGS (4)
  1. CLOZAPINE TEVA [Suspect]
     Active Substance: CLOZAPINE
     Dosage: DAILY AT 4PM
  2. CLOZAPINE TEVA [Suspect]
     Active Substance: CLOZAPINE
     Dosage: EVERY MORNING
  3. CLOZAPINE TEVA [Suspect]
     Active Substance: CLOZAPINE
     Dosage: EVERY EVENING
  4. CLOZAPINE TEVA [Suspect]
     Active Substance: CLOZAPINE
     Dosage: EVERY NIGHT

REACTIONS (1)
  - Dyspnoea [Unknown]
